FAERS Safety Report 25981272 (Version 1)
Quarter: 2025Q4

REPORT INFORMATION
  Report Type: Spontaneous
  Country: AU (occurrence: AU)
  Receive Date: 20251030
  Receipt Date: 20251030
  Transmission Date: 20260117
  Serious: Yes (Hospitalization, Other)
  Sender: MERCK SHARP & DOHME LLC
  Company Number: AU-009507513-2344666

PATIENT
  Age: 1 Year
  Sex: Female

DRUGS (5)
  1. MEASLES-MUMPS-RUBELLA VIRUS VACCINE [Suspect]
     Active Substance: MEASLES-MUMPS-RUBELLA VIRUS VACCINE
     Route: 030
     Dates: start: 20250402, end: 20250402
  2. STERILE DILUENT (WATER) [Suspect]
     Active Substance: WATER
     Route: 030
     Dates: start: 20250402, end: 20250402
  3. BEXSERO [Suspect]
     Active Substance: MENINGOCOCCAL GROUP B VACCINE
     Route: 030
     Dates: start: 20250402, end: 20250402
  4. NIMENRIX [Suspect]
     Active Substance: CLOSTRIDIUM TETANI TOXOID ANTIGEN (FORMALDEHYDE INACTIVATED)\MENINGOCOCCAL POLYSACCHARIDE VACCINE, G
     Route: 030
     Dates: start: 20250402, end: 20250402
  5. PREVNAR 13 [Suspect]
     Active Substance: STREPTOCOCCUS PNEUMONIAE TYPE 1 CAPSULAR POLYSACCHARIDE DIPHTHERIA CRM197 PROTEIN CONJUGATE ANTIGEN\
     Route: 030
     Dates: start: 20250402, end: 20250402

REACTIONS (5)
  - Pyrexia [Unknown]
  - Generalised tonic-clonic seizure [Recovered/Resolved]
  - Unresponsive to stimuli [Recovered/Resolved]
  - Vomiting [Unknown]
  - Lethargy [Unknown]

NARRATIVE: CASE EVENT DATE: 20250402
